FAERS Safety Report 14974007 (Version 1)
Quarter: 2018Q2

REPORT INFORMATION
  Report Type: Spontaneous
  Country: US (occurrence: US)
  Receive Date: 20180514
  Receipt Date: 20180514
  Transmission Date: 20180711
  Serious: Yes (Hospitalization)
  Sender: FDA-Public Use
  Company Number: None

PATIENT
  Age: 54 Year
  Sex: Male

DRUGS (13)
  1. HYDROCHLOROTHIAZIDE. [Concomitant]
     Active Substance: HYDROCHLOROTHIAZIDE
  2. PREZCOBIX [Suspect]
     Active Substance: COBICISTAT\DARUNAVIR ETHANOLATE
     Indication: HIV INFECTION
     Route: 048
  3. OXYCODONE AND ACETAMINOPHEN [Concomitant]
     Active Substance: ACETAMINOPHEN\OXYCODONE HYDROCHLORIDE
  4. TRUVADA [Suspect]
     Active Substance: EMTRICITABINE\TENOFOVIR DISOPROXIL FUMARATE
     Indication: HIV INFECTION
     Route: 048
  5. DAPSONE. [Concomitant]
     Active Substance: DAPSONE
  6. FLUCONAZOLE. [Concomitant]
     Active Substance: FLUCONAZOLE
  7. MELOXICAM. [Concomitant]
     Active Substance: MELOXICAM
  8. LEVOFLOXACIN. [Concomitant]
     Active Substance: LEVOFLOXACIN
  9. AMLODIPINE [Concomitant]
     Active Substance: AMLODIPINE BESYLATE
  10. CYCLOBENZAPRINE. [Concomitant]
     Active Substance: CYCLOBENZAPRINE
  11. PREDNISONE. [Concomitant]
     Active Substance: PREDNISONE
  12. IBUPROFEN. [Concomitant]
     Active Substance: IBUPROFEN
  13. AMOX/K CLAV [Concomitant]
     Active Substance: AMOXICILLIN\CLAVULANATE POTASSIUM

REACTIONS (2)
  - Meningitis [None]
  - Drug dose omission [None]

NARRATIVE: CASE EVENT DATE: 20180414
